FAERS Safety Report 4554599-5 (Version None)
Quarter: 2005Q1

REPORT INFORMATION
  Report Type: 
  Country: None (occurrence: None)
  Receive Date: 20050118
  Receipt Date: 20041015
  Transmission Date: 20050727
  Serious: Yes (Other)
  Sender: FDA-Public Use
  Company Number: US-MERCK-0410USA02432

PATIENT
  Age: 65 Year
  Sex: Male
  Weight: 75 kg

DRUGS (4)
  1. VIOXX [Suspect]
     Indication: ARTHRITIS
     Route: 048
     Dates: start: 20010118
  2. VIOXX [Suspect]
     Route: 048
     Dates: start: 20010601
  3. VIOXX [Suspect]
     Route: 048
     Dates: start: 20021001, end: 20030101
  4. ASPIRIN [Concomitant]
     Route: 065

REACTIONS (18)
  - ADVERSE EVENT [None]
  - AMNESIA [None]
  - ARTHRITIS [None]
  - BACK PAIN [None]
  - CHEST PAIN [None]
  - DIZZINESS [None]
  - DYSPNOEA [None]
  - ERECTILE DYSFUNCTION [None]
  - EXOSTOSIS [None]
  - FATIGUE [None]
  - HEADACHE [None]
  - HYPERTENSION [None]
  - LABYRINTHITIS [None]
  - LOSS OF CONSCIOUSNESS [None]
  - SYNCOPE [None]
  - TACHYCARDIA [None]
  - TESTICULAR CYST [None]
  - THERAPEUTIC RESPONSE DECREASED [None]
